FAERS Safety Report 8308231-5 (Version None)
Quarter: 2012Q2

REPORT INFORMATION
  Report Type: 
  Country: None (occurrence: None)
  Receive Date: 20120419
  Receipt Date: 20120405
  Transmission Date: 20120825
  Serious: Yes (Other)
  Sender: FDA-Public Use
  Company Number: 2012HGS-003505

PATIENT
  Sex: Female
  Weight: 87 kg

DRUGS (5)
  1. BENLYSTA [Suspect]
     Dosage: 1 IN 4 WK, INTRAVENOUS DRIP
     Route: 041
     Dates: start: 20120112
  2. CALCIUM (CALCIUM GLUCONATE) (CALCIUM GLUCONATE) [Concomitant]
  3. VITAMIN D (ERGOCALCIFEROL) (ERGOCALCIFEROL) [Concomitant]
  4. FOSAMAX [Concomitant]
  5. PREDNISONE [Concomitant]

REACTIONS (4)
  - ANGER [None]
  - EMOTIONAL DISTRESS [None]
  - WRIST FRACTURE [None]
  - BRONCHITIS [None]
